FAERS Safety Report 5945032-7 (Version None)
Quarter: 2008Q4

REPORT INFORMATION
  Report Type: 
  Country: None (occurrence: None)
  Receive Date: 20081107
  Receipt Date: 20081029
  Transmission Date: 20090506
  Serious: Yes (Hospitalization)
  Sender: FDA-Public Use
  Company Number: US-CELGENEUS-163-21880-08110011

PATIENT
  Sex: Female

DRUGS (2)
  1. REVLIMID [Suspect]
     Indication: MULTIPLE MYELOMA
     Route: 048
     Dates: start: 20070316, end: 20081011
  2. REVLIMID [Suspect]
     Route: 048
     Dates: start: 20081022

REACTIONS (3)
  - ANAEMIA [None]
  - ELECTROLYTE IMBALANCE [None]
  - OEDEMA [None]
